FAERS Safety Report 7028222-4 (Version None)
Quarter: 2010Q4

REPORT INFORMATION
  Report Type: 
  Country: None (occurrence: None)
  Receive Date: 20101005
  Receipt Date: 20100927
  Transmission Date: 20110411
  Serious: Yes (Other)
  Sender: FDA-Public Use
  Company Number: AU-WYE-G06653610

PATIENT
  Sex: Female

DRUGS (2)
  1. PRISTIQ [Suspect]
     Dosage: 50MG
     Dates: start: 20100401
  2. PRISTIQ [Suspect]
     Dosage: 50MG EVERY SECOND DAY
     Dates: start: 20100101, end: 20100101

REACTIONS (5)
  - BLOOD CHOLESTEROL INCREASED [None]
  - CONTUSION [None]
  - HEPATIC ENZYME INCREASED [None]
  - JAUNDICE [None]
  - URTICARIA [None]
